FAERS Safety Report 22105241 (Version 1)
Quarter: 2023Q1

REPORT INFORMATION
  Report Type: Spontaneous
  Country: CN (occurrence: CN)
  Receive Date: 20230317
  Receipt Date: 20230317
  Transmission Date: 20230417
  Serious: Yes (Other)
  Sender: FDA-Public Use
  Company Number: None

PATIENT
  Age: 54 Year
  Sex: Female
  Weight: 67.5 kg

DRUGS (10)
  1. SODIUM CHLORIDE [Suspect]
     Active Substance: SODIUM CHLORIDE
     Indication: Squamous cell carcinoma of the cervix
     Dosage: 500 ML ONCE DAILY
     Route: 041
     Dates: start: 20230224, end: 20230224
  2. SODIUM CHLORIDE [Suspect]
     Active Substance: SODIUM CHLORIDE
     Indication: Cervix carcinoma stage III
     Dosage: 500 ML ONCE DAILY
     Route: 041
     Dates: start: 20230224, end: 20230224
  3. TAXOL [Suspect]
     Active Substance: PACLITAXEL
     Indication: Chemotherapy
     Dosage: 270 MG ONCE DAILY
     Route: 041
     Dates: start: 20230224, end: 20230224
  4. TAXOL [Suspect]
     Active Substance: PACLITAXEL
     Indication: Squamous cell carcinoma of the cervix
     Dosage: 30 MG ONCE DAILY
     Route: 041
     Dates: start: 20230224, end: 20230224
  5. TAXOL [Suspect]
     Active Substance: PACLITAXEL
     Indication: Cervix carcinoma stage III
  6. CISPLATIN [Suspect]
     Active Substance: CISPLATIN
     Indication: Chemotherapy
     Dosage: 120 MG ONCE DAILY
     Route: 041
     Dates: start: 20230224, end: 20230224
  7. CISPLATIN [Suspect]
     Active Substance: CISPLATIN
     Indication: Squamous cell carcinoma of the cervix
  8. CISPLATIN [Suspect]
     Active Substance: CISPLATIN
     Indication: Cervix carcinoma stage III
  9. SODIUM CHLORIDE [Suspect]
     Active Substance: SODIUM CHLORIDE
     Indication: Squamous cell carcinoma of the cervix
     Dosage: 100 ML ONCE DAILY
     Route: 041
     Dates: start: 20230224, end: 20230224
  10. SODIUM CHLORIDE [Suspect]
     Active Substance: SODIUM CHLORIDE
     Indication: Cervix carcinoma stage III

REACTIONS (3)
  - Myelosuppression [Unknown]
  - Neutrophil count decreased [Recovering/Resolving]
  - White blood cell count decreased [Recovering/Resolving]

NARRATIVE: CASE EVENT DATE: 20230226
